FAERS Safety Report 7668143-7 (Version None)
Quarter: 2011Q3

REPORT INFORMATION
  Report Type: 
  Country: None (occurrence: None)
  Receive Date: 20110808
  Receipt Date: 20110805
  Transmission Date: 20111222
  Serious: Yes (Other)
  Sender: FDA-Public Use
  Company Number: US-PFIZER INC-2011180114

PATIENT
  Sex: Female
  Weight: 71.655 kg

DRUGS (6)
  1. NEURONTIN [Suspect]
     Indication: RESTLESS LEGS SYNDROME
     Dosage: 1200 MG, 1X/DAY
     Route: 048
     Dates: start: 20080101
  2. TOPROL-XL [Concomitant]
     Indication: HYPERTENSION
     Dosage: UNK
  3. TRAMADOL [Concomitant]
     Indication: HEADACHE
     Dosage: UNK
  4. ASPIRIN [Concomitant]
     Indication: ANTICOAGULANT THERAPY
     Dosage: UNK
  5. ZANTAC [Concomitant]
     Indication: ABDOMINAL DISCOMFORT
     Dosage: UNK
  6. ZOLOFT [Suspect]
     Indication: DEPRESSION
     Dosage: 100 MG, 1X/DAY
     Route: 048
     Dates: start: 19941201

REACTIONS (2)
  - BLOOD CHOLESTEROL INCREASED [None]
  - CEREBROVASCULAR ACCIDENT [None]
